FAERS Safety Report 5889924-6 (Version None)
Quarter: 2008Q3

REPORT INFORMATION
  Report Type: 
  Country: None (occurrence: None)
  Receive Date: 20080919
  Receipt Date: 20080913
  Transmission Date: 20090109
  Serious: Yes (Hospitalization)
  Sender: FDA-Public Use
  Company Number: PHHY2008MX21321

PATIENT
  Age: 59 Year
  Sex: Female

DRUGS (1)
  1. DIOVAN HCT [Suspect]
     Indication: HYPERTENSION
     Dosage: 80/12.5 MG, 1 TABLET/DAY
     Route: 048
     Dates: start: 20060401

REACTIONS (2)
  - GALLBLADDER OPERATION [None]
  - GASTRITIS [None]
